FAERS Safety Report 9510676 (Version 2)
Quarter: 2013Q4

REPORT INFORMATION
  Report Type: Spontaneous
  Country: BR (occurrence: BR)
  Receive Date: 20130909
  Receipt Date: 20131113
  Transmission Date: 20140711
  Serious: Yes (Other)
  Sender: FDA-Public Use
  Company Number: PHHY2013BR098090

PATIENT
  Sex: Female

DRUGS (2)
  1. NYOLOL 0.1% GEL [Suspect]
     Dosage: UNK
  2. TIMOLOL [Suspect]
     Dosage: UNK

REACTIONS (2)
  - Eyelid oedema [Unknown]
  - Eye irritation [Unknown]
